FAERS Safety Report 8180122-2 (Version None)
Quarter: 2012Q1

REPORT INFORMATION
  Report Type: 
  Country: None (occurrence: None)
  Receive Date: 20120302
  Receipt Date: 20120228
  Transmission Date: 20120608
  Serious: Yes (Death)
  Sender: FDA-Public Use
  Company Number: DE-B.I. PHARMACEUTICALS,INC./RIDGEFIELD-2011-DE-05872DE

PATIENT
  Sex: Female
  Weight: 63 kg

DRUGS (20)
  1. METOPROLOL SUCCINATE [Concomitant]
  2. DIGITOXIN TAB [Concomitant]
  3. NOVALGIN [Concomitant]
  4. LORMETAZEPAM [Concomitant]
  5. PRADAXA [Suspect]
     Indication: ATRIAL FIBRILLATION
     Dosage: 220 MG
     Dates: start: 20110927, end: 20110928
  6. MELPERON [Concomitant]
  7. METOPROLOL TARTRATE AND HYDROCHLOROTHIAZIDE [Concomitant]
  8. AMLODIPINE [Concomitant]
     Dosage: 1 ANZ
  9. PREDNISOLON 5MG [Concomitant]
     Dosage: 5 MG
  10. PANTOPRAZOLE [Concomitant]
  11. CERTOPARIN [Suspect]
     Indication: B-CELL LYMPHOMA
     Dosage: 2 ANZ
  12. PREDNISON H5 [Concomitant]
  13. MIRTAZAPINE [Concomitant]
     Dosage: 45 MG
  14. LYRICA [Concomitant]
  15. METOPROLOL SUCCINATE [Concomitant]
     Dosage: 2 ANZ
  16. MIRTAZAPINE [Concomitant]
  17. SIMVASTATIN [Concomitant]
  18. RAMIPRIL [Concomitant]
  19. TRIAMTERENE AND HYDROCHLOROTHIAZIDE [Concomitant]
  20. RAMIPRIL 5 [Concomitant]
     Dosage: 1 ANZ

REACTIONS (1)
  - HAEMORRHAGE INTRACRANIAL [None]
